FAERS Safety Report 7128070-0 (Version None)
Quarter: 2010Q4

REPORT INFORMATION
  Report Type: 
  Country: None (occurrence: None)
  Receive Date: 20101112
  Receipt Date: 20101105
  Transmission Date: 20110411
  Serious: Yes (Other)
  Sender: FDA-Public Use
  Company Number: 2010SP058908

PATIENT
  Sex: Male

DRUGS (2)
  1. PEG-INTRON [Suspect]
     Indication: HEPATITIS
  2. REBETOL [Suspect]
     Indication: HEPATITIS

REACTIONS (3)
  - HAEMATEMESIS [None]
  - NO THERAPEUTIC RESPONSE [None]
  - VOMITING [None]
